FAERS Safety Report 11723885 (Version 1)
Quarter: 2015Q4

REPORT INFORMATION
  Report Type: Spontaneous
  Country: US (occurrence: US)
  Receive Date: 20151111
  Receipt Date: 20151111
  Transmission Date: 20160304
  Serious: No
  Sender: FDA-Public Use
  Company Number: US-PERRIGO-15US004871

PATIENT
  Sex: Female
  Weight: 79.37 kg

DRUGS (3)
  1. NICOTINE POLACRILEX [Suspect]
     Active Substance: NICOTINE
     Indication: SMOKING CESSATION THERAPY
     Dosage: 4 MG, EVERY 2 TO 3 HOURS
     Route: 002
     Dates: start: 2009, end: 2009
  2. NICOTINE POLACRILEX [Suspect]
     Active Substance: NICOTINE
     Indication: SMOKING CESSATION THERAPY
     Dosage: 2 MG, EVERY 2 TO 3 HOURS
     Route: 002
     Dates: start: 201502, end: 20150507
  3. NICOTINE POLACRILEX [Suspect]
     Active Substance: NICOTINE
     Indication: SMOKING CESSATION THERAPY
     Dosage: 4 MG, EVERY 2 TO 3 HOURS
     Route: 002
     Dates: start: 2010, end: 2010

REACTIONS (4)
  - Rash erythematous [Recovered/Resolved]
  - Skin ulcer [Recovered/Resolved]
  - Incorrect dose administered [Recovered/Resolved]
  - Pruritus [Recovered/Resolved]

NARRATIVE: CASE EVENT DATE: 2009
